FAERS Safety Report 19632404 (Version 1)
Quarter: 2021Q3

REPORT INFORMATION
  Report Type: Spontaneous
  Country: US (occurrence: US)
  Receive Date: 20210728
  Receipt Date: 20210728
  Transmission Date: 20211014
  Serious: No
  Sender: FDA-Public Use
  Company Number: US-ROCHE-2651388

PATIENT
  Age: 55 Year
  Sex: Male

DRUGS (2)
  1. XELODA [Suspect]
     Active Substance: CAPECITABINE
     Indication: PRODUCT USED FOR UNKNOWN INDICATION
     Dosage: ONGOING:YES, TAB 500MG
     Route: 048
     Dates: start: 202007
  2. XELODA [Suspect]
     Active Substance: CAPECITABINE
     Dosage: ONGOING:YES, TAB 500MG
     Route: 048
     Dates: start: 20200701

REACTIONS (1)
  - Peripheral swelling [Unknown]

NARRATIVE: CASE EVENT DATE: 20200707
